FAERS Safety Report 12063228 (Version 1)
Quarter: 2016Q1

REPORT INFORMATION
  Report Type: Spontaneous
  Country: US (occurrence: US)
  Receive Date: 20160210
  Receipt Date: 20160210
  Transmission Date: 20160526
  Serious: No
  Sender: FDA-Public Use
  Company Number: US-ALLERGAN-1416783US

PATIENT
  Age: 66 Year
  Sex: Female

DRUGS (3)
  1. BOTOX [Suspect]
     Active Substance: ONABOTULINUMTOXINA
     Indication: EYE MOVEMENT DISORDER
  2. SYNTHROID [Concomitant]
     Active Substance: LEVOTHYROXINE SODIUM
     Dosage: UNK
  3. BOTOX [Suspect]
     Active Substance: ONABOTULINUMTOXINA
     Indication: MUSCLE TWITCHING
     Dosage: UNK, SINGLE
     Route: 030
     Dates: start: 20140701, end: 20140701

REACTIONS (2)
  - Facial paresis [Unknown]
  - Asthenia [Unknown]
